FAERS Safety Report 5389256-9 (Version None)
Quarter: 2007Q3

REPORT INFORMATION
  Report Type: 
  Country: None (occurrence: None)
  Receive Date: 20070717
  Receipt Date: 20070709
  Transmission Date: 20080115
  Serious: Yes (Hospitalization)
  Sender: FDA-Public Use
  Company Number: B0476570A

PATIENT
  Age: 31 Year
  Sex: Female
  Weight: 62 kg

DRUGS (2)
  1. CEFAMEZIN [Suspect]
     Indication: INFECTION
     Route: 042
     Dates: start: 20070611, end: 20070611
  2. TACROLIMUS [Concomitant]
     Route: 065

REACTIONS (7)
  - ANAPHYLACTIC REACTION [None]
  - CHOKING SENSATION [None]
  - DYSPNOEA [None]
  - FEELING HOT [None]
  - INJECTION SITE PRURITUS [None]
  - MALAISE [None]
  - URTICARIA [None]
